FAERS Safety Report 11315904 (Version 1)
Quarter: 2015Q3

REPORT INFORMATION
  Report Type: Spontaneous
  Country: US (occurrence: None)
  Receive Date: 20150724
  Receipt Date: 20150724
  Transmission Date: 20151125
  Serious: Yes (Other)
  Sender: FDA-Public Use
  Company Number: AE-15-007

PATIENT
  Age: 19 Year
  Sex: Female

DRUGS (3)
  1. CIPROFLOXACIN UNK STRENGTH UNK MANUFACTURER [Suspect]
     Active Substance: CIPROFLOXACIN
     Indication: VAGINAL INFECTION
  2. FLUCONAZOLE. [Concomitant]
     Active Substance: FLUCONAZOLE
  3. CIPROFLOXACIN. [Concomitant]
     Active Substance: CIPROFLOXACIN

REACTIONS (2)
  - Stevens-Johnson syndrome [None]
  - Photosensitivity reaction [None]

NARRATIVE: CASE EVENT DATE: 2014
